FAERS Safety Report 15968759 (Version 1)
Quarter: 2019Q1

REPORT INFORMATION
  Report Type: Spontaneous
  Country: CA (occurrence: CA)
  Receive Date: 20190215
  Receipt Date: 20190215
  Transmission Date: 20190418
  Serious: Yes (Other)
  Sender: FDA-Public Use
  Company Number: CA-PFIZER INC-2019064453

PATIENT
  Age: 40 Year
  Sex: Male

DRUGS (3)
  1. IBUPROFEN. [Suspect]
     Active Substance: IBUPROFEN
     Dosage: UNK
     Route: 065
  2. CIPROFLOXACIN HCL [Suspect]
     Active Substance: CIPROFLOXACIN HYDROCHLORIDE
     Dosage: UNK
     Route: 065
  3. METRONIDAZOLE. [Suspect]
     Active Substance: METRONIDAZOLE
     Dosage: UNK
     Route: 065

REACTIONS (8)
  - Anxiety [Unknown]
  - Gait disturbance [Unknown]
  - Hypoacusis [Unknown]
  - Confusional state [Unknown]
  - Depression [Unknown]
  - Hallucination [Unknown]
  - Dizziness [Unknown]
  - Swelling [Unknown]
